FAERS Safety Report 12841647 (Version 1)
Quarter: 2016Q4

REPORT INFORMATION
  Report Type: Spontaneous
  Country: AU (occurrence: AU)
  Receive Date: 20161012
  Receipt Date: 20161012
  Transmission Date: 20170207
  Serious: Yes (Other)
  Sender: FDA-Public Use
  Company Number: AU-GLAXOSMITHKLINE-AU2016GSK149788

PATIENT
  Age: 53 Year
  Sex: Male

DRUGS (8)
  1. VALACYCLOVIR [Suspect]
     Active Substance: VALACYCLOVIR HYDROCHLORIDE
     Indication: CHEMOTHERAPY
  2. IDARUBICIN [Concomitant]
     Active Substance: IDARUBICIN
     Indication: CHEMOTHERAPY
  3. PANTOPRAZOLE [Suspect]
     Active Substance: PANTOPRAZOLE SODIUM
     Indication: CHEMOTHERAPY
  4. AMIODARONE [Suspect]
     Active Substance: AMIODARONE
     Indication: CHEMOTHERAPY
  5. IMATINIB [Concomitant]
     Active Substance: IMATINIB
     Indication: CHEMOTHERAPY
  6. CYTOSINE ARABINOSIDE [Concomitant]
     Active Substance: CYTARABINE
     Indication: CHEMOTHERAPY
  7. DASATINIB [Suspect]
     Active Substance: DASATINIB
     Indication: CHEMOTHERAPY
  8. HYDROXYUREA. [Concomitant]
     Active Substance: HYDROXYUREA
     Indication: CHEMOTHERAPY

REACTIONS (7)
  - Acute kidney injury [Unknown]
  - Renal tubular necrosis [Unknown]
  - Klebsiella infection [Unknown]
  - Atrial fibrillation [Unknown]
  - Thrombocytopenia [Unknown]
  - Neutropenic sepsis [Unknown]
  - Staphylococcal infection [Unknown]
